FAERS Safety Report 7364899-1 (Version None)
Quarter: 2011Q1

REPORT INFORMATION
  Report Type: 
  Country: None (occurrence: None)
  Receive Date: 20110321
  Receipt Date: 20110315
  Transmission Date: 20110831
  Serious: Yes (Death, Hospitalization)
  Sender: FDA-Public Use
  Company Number: BR-ASTRAZENECA-2011SE14421

PATIENT
  Age: 85 Year
  Sex: Female

DRUGS (3)
  1. ATACAND HCT [Suspect]
     Indication: HYPERTENSION
     Dosage: 16/2.5 MG
     Route: 048
     Dates: start: 20090101
  2. ASPIRIN [Concomitant]
     Route: 048
     Dates: start: 20090101
  3. ADALAT [Concomitant]
     Route: 048
     Dates: start: 20090101

REACTIONS (2)
  - PNEUMONIA [None]
  - MYOCARDIAL INFARCTION [None]
